FAERS Safety Report 20853188 (Version 2)
Quarter: 2022Q2

REPORT INFORMATION
  Report Type: Report from Study
  Country: US (occurrence: US)
  Receive Date: 20220520
  Receipt Date: 20220616
  Transmission Date: 20220721
  Serious: Yes (Hospitalization, Other)
  Sender: FDA-Public Use
  Company Number: US-BIOVITRUM-2021US9977

PATIENT
  Age: 67 Year
  Sex: Male

DRUGS (3)
  1. KINERET [Suspect]
     Active Substance: ANAKINRA
     Indication: Encephalitis
     Dosage: 300 MG EVERY MORNING, 200 MG EVERY EVENING
     Route: 058
     Dates: start: 20210129
  2. KINERET [Suspect]
     Active Substance: ANAKINRA
     Indication: Encephalomyelitis
     Route: 058
     Dates: start: 20210129
  3. KINERET [Suspect]
     Active Substance: ANAKINRA
     Route: 058
     Dates: start: 20190430

REACTIONS (6)
  - Pulmonary embolism [Unknown]
  - Condition aggravated [Recovered/Resolved]
  - Encephalomyelitis [Recovered/Resolved]
  - Encephalitis [Recovered/Resolved]
  - COVID-19 [Unknown]
  - Off label use [Not Recovered/Not Resolved]

NARRATIVE: CASE EVENT DATE: 20190430
